FAERS Safety Report 7741283-X (Version None)
Quarter: 2011Q3

REPORT INFORMATION
  Report Type: 
  Country: None (occurrence: None)
  Receive Date: 20110909
  Receipt Date: 20110902
  Transmission Date: 20111222
  Serious: Yes (Other)
  Sender: FDA-Public Use
  Company Number: US-US-EMD SERONO, INC.-230619J10USA

PATIENT
  Sex: Female
  Weight: 82 kg

DRUGS (2)
  1. REBIF [Suspect]
     Indication: MULTIPLE SCLEROSIS
     Route: 058
     Dates: start: 20090826
  2. NAPROXEN (ALEVE) [Concomitant]
     Indication: PREMEDICATION

REACTIONS (1)
  - VIITH NERVE PARALYSIS [None]
